FAERS Safety Report 15493614 (Version 1)
Quarter: 2018Q4

REPORT INFORMATION
  Report Type: Spontaneous
  Country: FR (occurrence: FR)
  Receive Date: 20181012
  Receipt Date: 20181012
  Transmission Date: 20190205
  Serious: Yes (Other)
  Sender: FDA-Public Use
  Company Number: FR-SA-2018SA280336

PATIENT
  Age: 63 Year
  Sex: Male

DRUGS (2)
  1. VANCOMYCINE [VANCOMYCIN] [Concomitant]
     Indication: MEDICAL DEVICE SITE INFECTION
     Dosage: 4 G, QD
     Route: 042
     Dates: start: 20171213, end: 20180124
  2. RIFAMPICIN [Suspect]
     Active Substance: RIFAMPIN
     Indication: MEDICAL DEVICE SITE INFECTION
     Dosage: 600 MG, QD
     Route: 048
     Dates: start: 20171225, end: 20180102

REACTIONS (1)
  - Hepatocellular injury [Recovered/Resolved]

NARRATIVE: CASE EVENT DATE: 20180102
